FAERS Safety Report 9942344 (Version 2)
Quarter: 2014Q1

REPORT INFORMATION
  Report Type: Spontaneous
  Country: JP (occurrence: JP)
  Receive Date: 20140303
  Receipt Date: 20140320
  Transmission Date: 20141002
  Serious: Yes (Hospitalization)
  Sender: FDA-Public Use
  Company Number: JP-PFIZER INC-2014059685

PATIENT
  Age: 33 Year
  Sex: Female

DRUGS (1)
  1. AMLODIN [Suspect]
     Dosage: 150 TABLETS

REACTIONS (3)
  - Intentional overdose [Unknown]
  - Coma [Unknown]
  - Rhabdomyolysis [Recovering/Resolving]
